FAERS Safety Report 4901331-9 (Version None)
Quarter: 2006Q1

REPORT INFORMATION
  Report Type: 
  Country: None (occurrence: None)
  Receive Date: 20060206
  Receipt Date: 20060124
  Transmission Date: 20060701
  Serious: Yes (Other)
  Sender: FDA-Public Use
  Company Number: US-ABBOTT-06P-163-0323283-00

PATIENT
  Sex: Male
  Weight: 82.174 kg

DRUGS (6)
  1. POTASSIUM CHLORIDE [Suspect]
     Indication: DRUG USE FOR UNKNOWN INDICATION
     Route: 048
     Dates: end: 20050526
  2. ARSENIC TRIOXIDE [Suspect]
     Indication: MULTIPLE MYELOMA
     Route: 042
     Dates: start: 20041220, end: 20050512
  3. ARSENIC TRIOXIDE [Suspect]
     Route: 042
     Dates: start: 20050101, end: 20050831
  4. VELCADE [Suspect]
     Indication: MULTIPLE MYELOMA
     Route: 042
     Dates: start: 20041220, end: 20050512
  5. BACTRIM [Suspect]
     Indication: PNEUMOCYSTIS JIROVECI PNEUMONIA
     Dates: start: 20050523, end: 20050526
  6. PREDNISONE [Suspect]
     Indication: PNEUMOCYSTIS JIROVECI PNEUMONIA
     Route: 048
     Dates: start: 20050523, end: 20050526

REACTIONS (4)
  - CARBON DIOXIDE DECREASED [None]
  - HYPERKALAEMIA [None]
  - PNEUMOCYSTIS JIROVECI PNEUMONIA [None]
  - PROTEIN TOTAL INCREASED [None]
